FAERS Safety Report 4777831-1 (Version None)
Quarter: 2005Q3

REPORT INFORMATION
  Report Type: 
  Country: None (occurrence: None)
  Receive Date: 20050915
  Receipt Date: 20050905
  Transmission Date: 20060218
  Serious: Yes (Death, Life-Threatening, Hospitalization, Other)
  Sender: FDA-Public Use
  Company Number: GBS050818135

PATIENT
  Age: 64 Year
  Sex: Female
  Weight: 70 kg

DRUGS (4)
  1. GEMZAR [Suspect]
     Indication: BREAST CANCER METASTATIC
     Dosage: 1700 MG
     Dates: start: 20050204, end: 20050624
  2. PACLITAXEL [Concomitant]
  3. DOMPERIDONE [Concomitant]
  4. LANSOPRAZOLE [Concomitant]

REACTIONS (7)
  - COLITIS [None]
  - DYSPNOEA [None]
  - GENERAL PHYSICAL HEALTH DETERIORATION [None]
  - HAEMOLYTIC URAEMIC SYNDROME [None]
  - OEDEMA PERIPHERAL [None]
  - PLATELET COUNT DECREASED [None]
  - RENAL IMPAIRMENT [None]
